FAERS Safety Report 19131875 (Version 1)
Quarter: 2021Q2

REPORT INFORMATION
  Report Type: Spontaneous
  Country: NL (occurrence: NL)
  Receive Date: 20210413
  Receipt Date: 20210413
  Transmission Date: 20210717
  Serious: Yes (Hospitalization)
  Sender: FDA-Public Use
  Company Number: NL-PFIZER INC-2021370521

PATIENT
  Age: 30 Year
  Sex: Female
  Weight: 122 kg

DRUGS (6)
  1. SUMATRIPTAN. [Concomitant]
     Active Substance: SUMATRIPTAN
  2. LITHIUMCARBONAAT [Concomitant]
     Active Substance: LITHIUM CARBONATE
     Dosage: 400 MG, 4X/DAY
  3. COLECALCIFEROL [Concomitant]
     Active Substance: CHOLECALCIFEROL
     Dosage: 7000 IU, WEEKLY
  4. EFEXOR XR [Suspect]
     Active Substance: VENLAFAXINE HYDROCHLORIDE
     Indication: DEPRESSION
     Dosage: 75 MG, 1X/DAY
     Dates: start: 2018, end: 20210323
  5. MIRTAZAPINE. [Concomitant]
     Active Substance: MIRTAZAPINE
  6. INSULINE ASPARTATE [Concomitant]
     Active Substance: INSULIN ASPART
     Dosage: 60 IU, 3X/DAY

REACTIONS (2)
  - Withdrawal syndrome [Recovered/Resolved]
  - Hypoglycaemia [Recovered/Resolved]

NARRATIVE: CASE EVENT DATE: 20210321
